FAERS Safety Report 6639745-1 (Version None)
Quarter: 2010Q1

REPORT INFORMATION
  Report Type: 
  Country: None (occurrence: None)
  Receive Date: 20100318
  Receipt Date: 20100308
  Transmission Date: 20100710
  Serious: Yes (Hospitalization)
  Sender: FDA-Public Use
  Company Number: PHHY2010DE15289

PATIENT
  Sex: Female
  Weight: 77 kg

DRUGS (9)
  1. ALISKIREN ALI+ [Suspect]
     Indication: HYPERTENSION
     Dosage: 300 MG PER DAY
     Route: 048
     Dates: start: 20081022, end: 20090701
  2. ALISKIREN ALI+ [Suspect]
     Dosage: 150 MG PER DAY
     Route: 048
     Dates: start: 20091107
  3. ANGIOTENSIN CONVERTING ENZYME BLOCKERS [Concomitant]
     Route: 065
  4. BETA BLOCKING AGENTS [Concomitant]
     Route: 065
  5. CALCIUM CHANNEL BLOCKERS [Concomitant]
     Route: 065
  6. DIURETICS [Concomitant]
     Route: 065
  7. ANTIHYPERTENSIVES [Concomitant]
     Route: 065
  8. PLATELET AGGREGATION INHIBITORS [Concomitant]
     Route: 065
  9. INSULIN [Concomitant]
     Route: 065

REACTIONS (1)
  - HYPERTENSIVE CRISIS [None]
